FAERS Safety Report 8155533-1 (Version None)
Quarter: 2012Q1

REPORT INFORMATION
  Report Type: 
  Country: None (occurrence: None)
  Receive Date: 20120222
  Receipt Date: 20120210
  Transmission Date: 20120608
  Serious: Yes (Hospitalization, Other)
  Sender: FDA-Public Use
  Company Number: CA-JNJFOC-20120205733

PATIENT
  Sex: Female

DRUGS (2)
  1. REMICADE [Suspect]
     Indication: CROHN'S DISEASE
     Dosage: PATIENT HAD ONLY TWO REMICADE TREATMENT AND STOPPED IN JAN-FEB-2011
     Route: 042
     Dates: end: 20110101
  2. PREDNISOLONE [Suspect]
     Indication: PRODUCT USED FOR UNKNOWN INDICATION
     Route: 065

REACTIONS (4)
  - GENERAL PHYSICAL HEALTH DETERIORATION [None]
  - DRUG INEFFECTIVE [None]
  - ADVERSE EVENT [None]
  - MAJOR DEPRESSION [None]
